FAERS Safety Report 7544204-8 (Version None)
Quarter: 2011Q2

REPORT INFORMATION
  Report Type: 
  Country: None (occurrence: None)
  Receive Date: 20110613
  Receipt Date: 20060721
  Transmission Date: 20111010
  Serious: Yes (Hospitalization, Other)
  Sender: FDA-Public Use
  Company Number: PHHO2004CA16739

PATIENT
  Sex: Male

DRUGS (12)
  1. SENNA-MINT WAF [Concomitant]
  2. AMLODIPINE [Concomitant]
  3. LIPITOR [Concomitant]
  4. LIPIDIL [Concomitant]
  5. PROCHLORPERAZINE TAB [Concomitant]
     Indication: VOMITING
  6. SANDOSTATIN LAR [Suspect]
     Indication: GASTROINTESTINAL NEOPLASM
     Dosage: 20 MG, QMO
     Dates: start: 20041101, end: 20050330
  7. METOPROLOL SUCCINATE [Concomitant]
  8. PAROXETINE HYDROCHLORIDE [Concomitant]
     Indication: DEPRESSION
  9. DOCUSATE CALCIUM [Concomitant]
  10. FENOFIBRATE [Concomitant]
  11. ASPIRIN [Concomitant]
  12. ALPRAZOLAM [Concomitant]
     Indication: ANXIETY

REACTIONS (6)
  - INTESTINAL OBSTRUCTION [None]
  - POSTOPERATIVE WOUND INFECTION [None]
  - GASTROINTESTINAL NEOPLASM [None]
  - GASTROINTESTINAL HAEMORRHAGE [None]
  - VOMITING [None]
  - PAIN [None]
